FAERS Safety Report 19057658 (Version 2)
Quarter: 2021Q4

REPORT INFORMATION
  Report Type: Spontaneous
  Country: US (occurrence: US)
  Receive Date: 20210325
  Receipt Date: 20211129
  Transmission Date: 20220303
  Serious: No
  Sender: FDA-Public Use
  Company Number: US-PFIZER INC-2021293384

PATIENT
  Age: 42 Year
  Sex: Female

DRUGS (1)
  1. XELJANZ [Suspect]
     Active Substance: TOFACITINIB CITRATE
     Indication: Colitis ulcerative
     Dosage: 5 MG, 2X/DAY
     Route: 048
     Dates: start: 202010

REACTIONS (6)
  - Headache [Unknown]
  - Weight increased [Unknown]
  - Acne [Unknown]
  - Alopecia [Unknown]
  - Fatigue [Unknown]
  - Blood cholesterol increased [Unknown]
